FAERS Safety Report 9700895 (Version 1)
Quarter: 2013Q4

REPORT INFORMATION
  Report Type: Spontaneous
  Country: US (occurrence: US)
  Receive Date: 20131121
  Receipt Date: 20131121
  Transmission Date: 20140711
  Serious: Yes (Other)
  Sender: FDA-Public Use
  Company Number: US-SA-2013SA119767

PATIENT
  Age: 59 Year
  Sex: 0
  Weight: 192 kg

DRUGS (9)
  1. ASPIRIN [Suspect]
     Indication: ANTIPLATELET THERAPY
     Route: 065
  2. CLOPIDOGREL BISULFATE [Suspect]
     Indication: ANTIPLATELET THERAPY
     Route: 065
  3. CLOPIDOGREL BISULFATE [Suspect]
     Indication: ANTIPLATELET THERAPY
     Route: 065
  4. LISINOPRIL [Concomitant]
  5. GLYBURIDE [Concomitant]
  6. INSULIN GLARGINE [Concomitant]
  7. INSULIN LISPRO [Concomitant]
  8. ROSUVASTATIN [Concomitant]
  9. HEPARIN [Concomitant]

REACTIONS (7)
  - Platelet aggregation [Unknown]
  - Therapeutic response decreased [Unknown]
  - Thrombosis in device [Recovered/Resolved]
  - Ischaemic stroke [Unknown]
  - Hemiplegia [Unknown]
  - Aphasia [Unknown]
  - Apraxia [Unknown]
